FAERS Safety Report 8068602-1 (Version None)
Quarter: 2012Q1

REPORT INFORMATION
  Report Type: 
  Country: None (occurrence: None)
  Receive Date: 20120124
  Receipt Date: 20111107
  Transmission Date: 20120608
  Serious: No
  Sender: FDA-Public Use
  Company Number: US-AMGEN-USASP2011058059

PATIENT
  Age: 74 Year
  Sex: Female

DRUGS (8)
  1. VITAMIN D [Concomitant]
     Dosage: 1 IU, QD
  2. ACETAMINOPHEN [Concomitant]
     Dosage: UNK
  3. SYMBICORT [Concomitant]
     Dosage: UNK
  4. AMITRIPTYLINE HCL [Concomitant]
     Dosage: UNK
  5. ZETIA [Concomitant]
     Dosage: UNK
  6. PROLIA [Suspect]
     Indication: OSTEOPOROSIS POSTMENOPAUSAL
     Dosage: 60 MG, Q6MO
     Dates: start: 20110728
  7. FOLBEE PLUS [Concomitant]
     Dosage: UNK
  8. LOVASTATIN [Concomitant]
     Dosage: UNK

REACTIONS (5)
  - BACK PAIN [None]
  - FIBROMYALGIA [None]
  - NECK PAIN [None]
  - MUSCULOSKELETAL PAIN [None]
  - PAIN IN EXTREMITY [None]
